FAERS Safety Report 4404875-1 (Version None)
Quarter: 2004Q2

REPORT INFORMATION
  Report Type: 
  Country: None (occurrence: None)
  Receive Date: 20040618
  Receipt Date: 20040420
  Transmission Date: 20050107
  Serious: No
  Sender: FDA-Public Use
  Company Number: NSADSS2003005607

PATIENT
  Age: 47 Year
  Sex: Female
  Weight: 62.1428 kg

DRUGS (4)
  1. ORTHO EVRA [Suspect]
     Indication: MENOPAUSAL SYMPTOMS
     Dosage: 1 DOSE(S), 3 IN 4 WEEK, TRANSDERMAL
     Route: 062
     Dates: start: 20020701, end: 20020901
  2. ORTHO EVRA [Suspect]
     Indication: MENOPAUSAL SYMPTOMS
     Dosage: 1 DOSE(S), 3 IN 4 WEEK, TRANSDERMAL
     Route: 062
     Dates: start: 20020501
  3. LIPITOR [Concomitant]
  4. XANAX [Concomitant]

REACTIONS (2)
  - ALOPECIA [None]
  - PAIN IN EXTREMITY [None]
